FAERS Safety Report 24426894 (Version 1)
Quarter: 2024Q4

REPORT INFORMATION
  Report Type: Report from Study
  Country: CA (occurrence: CA)
  Receive Date: 20241011
  Receipt Date: 20241011
  Transmission Date: 20250114
  Serious: Yes (Other)
  Sender: SANDOZ
  Company Number: CA-SANDOZ-SDZ2024CA086031

PATIENT
  Sex: Female

DRUGS (1)
  1. ERELZI [Suspect]
     Active Substance: ETANERCEPT-SZZS
     Indication: Rheumatoid arthritis
     Dosage: 50 MG, QW (PRE-FILLED SYRINGE)
     Route: 058

REACTIONS (4)
  - Loss of consciousness [Unknown]
  - Upper limb fracture [Unknown]
  - Fall [Unknown]
  - Injection site pain [Unknown]
